FAERS Safety Report 13279756 (Version 1)
Quarter: 2017Q1

REPORT INFORMATION
  Report Type: Spontaneous
  Country: US (occurrence: US)
  Receive Date: 20170228
  Receipt Date: 20170228
  Transmission Date: 20170428
  Serious: Yes (Death)
  Sender: FDA-Public Use
  Company Number: None

PATIENT
  Age: 72 Year
  Sex: Male

DRUGS (4)
  1. PRAXBIND [Suspect]
     Active Substance: IDARUCIZUMAB
     Indication: PROCOAGULANT THERAPY
     Dosage: ?          OTHER FREQUENCY:ONE TIME;?
     Route: 040
  2. REGLAN [Concomitant]
     Active Substance: METOCLOPRAMIDE HYDROCHLORIDE
  3. TD [Concomitant]
     Active Substance: CLOSTRIDIUM TETANI TOXOID ANTIGEN (FORMALDEHYDE INACTIVATED)\CORYNEBACTERIUM DIPHTHERIAE TOXOID ANTIGEN (FORMALDEHYDE INACTIVATED)
  4. ANCEF [Concomitant]
     Active Substance: CEFAZOLIN SODIUM

REACTIONS (10)
  - Vomiting [None]
  - Vascular calcification [None]
  - Ventricular hypokinesia [None]
  - Ventricular tachycardia [None]
  - Electrocardiogram ST segment elevation [None]
  - Ejection fraction decreased [None]
  - Vascular stent occlusion [None]
  - Blood pressure systolic decreased [None]
  - Pulseless electrical activity [None]
  - Shock [None]

NARRATIVE: CASE EVENT DATE: 20161111
